FAERS Safety Report 10242849 (Version 1)
Quarter: 2014Q2

REPORT INFORMATION
  Report Type: Spontaneous
  Country: IT (occurrence: IT)
  Receive Date: 20140618
  Receipt Date: 20140618
  Transmission Date: 20141212
  Serious: Yes (Life-Threatening, Hospitalization)
  Sender: FDA-Public Use
  Company Number: IT-AMGEN-ITASP2014044228

PATIENT
  Age: 55 Year
  Sex: Female

DRUGS (7)
  1. PROLIA [Suspect]
     Indication: OSTEOPOROSIS
     Dosage: 1 DF, UNK
     Route: 058
     Dates: start: 20140114, end: 20140114
  2. ARAVA [Suspect]
     Indication: RHEUMATOID ARTHRITIS
     Dosage: 1 DF, QD
     Route: 048
     Dates: start: 20140101, end: 20140219
  3. PLAUNAZIDE [Concomitant]
     Indication: HYPERTENSION
     Dosage: 1 DF, UNK
     Route: 048
  4. METHYLPREDNISOLONE [Concomitant]
  5. ETORICOXIB [Concomitant]
     Indication: RHEUMATOID ARTHRITIS
  6. CALCITRIOL [Concomitant]
  7. OMEPRAZOLE [Concomitant]

REACTIONS (2)
  - Acute respiratory failure [Recovering/Resolving]
  - H1N1 influenza [Recovering/Resolving]
